FAERS Safety Report 17992405 (Version 2)
Quarter: 2020Q3

REPORT INFORMATION
  Report Type: Spontaneous
  Country: JP (occurrence: JP)
  Receive Date: 20200707
  Receipt Date: 20200923
  Transmission Date: 20201103
  Serious: Yes (Hospitalization, Other)
  Sender: FDA-Public Use
  Company Number: NVSJ2020JP005521

PATIENT
  Age: 45 Year
  Sex: Female
  Weight: 44.5 kg

DRUGS (4)
  1. TAFINLAR [Suspect]
     Active Substance: DABRAFENIB MESYLATE
     Indication: MALIGNANT MELANOMA
     Dosage: 2 DF, BID
     Route: 048
     Dates: start: 20200323, end: 20200522
  2. TAFINLAR [Suspect]
     Active Substance: DABRAFENIB MESYLATE
     Indication: MALIGNANT MELANOMA
     Dosage: 2 DF, BID
     Route: 048
     Dates: start: 20200609
  3. MEKINIST [Suspect]
     Active Substance: TRAMETINIB DIMETHYL SULFOXIDE
     Indication: MALIGNANT MELANOMA
     Dosage: 1 DF, QD
     Route: 048
     Dates: start: 20200323, end: 20200522
  4. MEKINIST [Suspect]
     Active Substance: TRAMETINIB DIMETHYL SULFOXIDE
     Indication: MALIGNANT MELANOMA
     Dosage: 1 DF, QD
     Route: 048
     Dates: start: 20200609

REACTIONS (6)
  - Drug-induced liver injury [Recovering/Resolving]
  - Pyrexia [Unknown]
  - Malaise [Unknown]
  - Antimitochondrial antibody positive [Unknown]
  - Fatigue [Unknown]
  - Primary biliary cholangitis [Recovering/Resolving]

NARRATIVE: CASE EVENT DATE: 20200522
